FAERS Safety Report 10776429 (Version 2)
Quarter: 2015Q3

REPORT INFORMATION
  Report Type: Spontaneous
  Country: US (occurrence: US)
  Receive Date: 20150209
  Receipt Date: 20150730
  Transmission Date: 20151125
  Serious: No
  Sender: FDA-Public Use
  Company Number: US-GILEAD-2013-0081270

PATIENT
  Age: 65 Year
  Sex: Female

DRUGS (2)
  1. RANEXA [Suspect]
     Active Substance: RANOLAZINE
     Indication: OFF LABEL USE
  2. RANEXA [Suspect]
     Active Substance: RANOLAZINE
     Indication: DYSPNOEA
     Dosage: 1000 MG, UNK
     Route: 048
     Dates: start: 20130730

REACTIONS (2)
  - Peripheral swelling [Unknown]
  - Lip swelling [Unknown]

NARRATIVE: CASE EVENT DATE: 20130807
